FAERS Safety Report 17922419 (Version 1)
Quarter: 2020Q2

REPORT INFORMATION
  Report Type: Spontaneous
  Country: US (occurrence: US)
  Receive Date: 20200622
  Receipt Date: 20200622
  Transmission Date: 20200714
  Serious: No
  Sender: FDA-Public Use
  Company Number: US-PFIZER INC-2020164442

PATIENT
  Age: 82 Year
  Sex: Male
  Weight: 97.52 kg

DRUGS (3)
  1. SUTENT [Suspect]
     Active Substance: SUNITINIB MALATE
     Dosage: 50 MG, CYCLIC(FIRST 28 DAY CYCLE)
  2. SUTENT [Suspect]
     Active Substance: SUNITINIB MALATE
     Dosage: 37.5 MG, CYCLIC(WITH OR WITHOUT FOOD/4 WEEKS ON FOLLOWED BY 6 WEEKS OFF)
  3. SUTENT [Suspect]
     Active Substance: SUNITINIB MALATE
     Indication: RENAL CANCER
     Dosage: 37.5 MG, CYCLIC(FOR 28 DAYS)
     Route: 048
     Dates: start: 202002, end: 20200502

REACTIONS (6)
  - Platelet count decreased [Unknown]
  - Contusion [Unknown]
  - Blood pressure abnormal [Unknown]
  - Neoplasm progression [Unknown]
  - Musculoskeletal stiffness [Unknown]
  - Asthenia [Unknown]

NARRATIVE: CASE EVENT DATE: 20200611
